FAERS Safety Report 8096703-0 (Version None)
Quarter: 2012Q1

REPORT INFORMATION
  Report Type: 
  Country: None (occurrence: None)
  Receive Date: 20120129
  Receipt Date: 20111115
  Transmission Date: 20120608
  Serious: Yes (Other)
  Sender: FDA-Public Use
  Company Number: US-ABBOTT-11P-163-0874584-00

PATIENT
  Age: 66 Year
  Sex: Female

DRUGS (2)
  1. HUMIRA [Suspect]
     Indication: PROPHYLAXIS
     Dates: start: 20111027
  2. HUMIRA [Suspect]
     Indication: CROHN'S DISEASE
     Dates: start: 20110101, end: 20110701

REACTIONS (5)
  - COLECTOMY [None]
  - DRUG INEFFECTIVE [None]
  - JOINT SWELLING [None]
  - ARTHRALGIA [None]
  - GAIT DISTURBANCE [None]
